FAERS Safety Report 16733194 (Version 4)
Quarter: 2019Q3

REPORT INFORMATION
  Report Type: Report from Study
  Country: IT (occurrence: IT)
  Receive Date: 20190823
  Receipt Date: 20190923
  Transmission Date: 20191005
  Serious: Yes (Hospitalization)
  Sender: FDA-Public Use
  Company Number: IT-ROCHE-2382551

PATIENT
  Age: 32 Year
  Sex: Female
  Weight: 79 kg

DRUGS (15)
  1. OCRELIZUMAB. [Suspect]
     Active Substance: OCRELIZUMAB
     Indication: RELAPSING-REMITTING MULTIPLE SCLEROSIS
     Dosage: ADMINISTERED INTRAVENOUSLY (IV) AS TWO 300-MILLIGRAM (MG) INFUSIONS (INFUSION LENGTH=2.5 HOURS) ON
     Route: 042
     Dates: start: 20171124
  2. TRIMETON [Concomitant]
     Active Substance: CHLORPHENIRAMINE MALEATE
     Indication: PREMEDICATION
     Dosage: SUBSEQUENT DOSE ON: 07/DEC/2017, 31/MAY/2018, 16/NOV/2018
     Route: 042
     Dates: start: 20171124
  3. TACHIPIRINA [Concomitant]
     Active Substance: ACETAMINOPHEN
     Indication: PREMEDICATION
     Dosage: SUBSEQUENT DOSE ON: 07/DEC/2017, 31/MAY/2018
     Route: 048
     Dates: start: 20171124
  4. OCRELIZUMAB. [Suspect]
     Active Substance: OCRELIZUMAB
     Dosage: ADMINISTERED INTRAVENOUSLY (IV) AS TWO 300-MILLIGRAM (MG) INFUSIONS (INFUSION LENGTH=2.5 HOURS) ON
     Route: 042
  5. PARACETAMOL [Concomitant]
     Active Substance: ACETAMINOPHEN
     Indication: PREMEDICATION
     Route: 042
     Dates: start: 20181116
  6. TRIMETON [Concomitant]
     Active Substance: CHLORPHENIRAMINE MALEATE
     Route: 042
     Dates: start: 20190903
  7. METHYLPREDNISOLONE. [Suspect]
     Active Substance: METHYLPREDNISOLONE
     Indication: PREMEDICATION
     Dosage: SUBSEQUENT DOSE ON: 07/DEC/2017
     Route: 042
     Dates: start: 20171124
  8. ZANTAC [Concomitant]
     Active Substance: RANITIDINE HYDROCHLORIDE
     Indication: PREMEDICATION
     Dosage: SUBSEQUENT DOSE ON: 16/NOV/2018
     Route: 042
     Dates: start: 20171124
  9. ZANTAC [Concomitant]
     Active Substance: RANITIDINE HYDROCHLORIDE
     Route: 042
     Dates: start: 20190903
  10. METHYLPREDNISOLONE. [Suspect]
     Active Substance: METHYLPREDNISOLONE
     Dosage: SUBSEQUENT DOSE ON: 16/NOV/2018
     Route: 042
     Dates: start: 20180531
  11. PARACETAMOL [Concomitant]
     Active Substance: ACETAMINOPHEN
     Route: 048
     Dates: start: 20190903
  12. GINODEN [Concomitant]
     Active Substance: ETHINYL ESTRADIOL\GESTODENE
     Route: 048
  13. RANITIDINA [RANITIDINE] [Concomitant]
     Active Substance: RANITIDINE
     Indication: PREMEDICATION
     Dosage: SUBSEQUENT DOSE ON: 31/MAY/2018
     Route: 042
     Dates: start: 20171217
  14. SOLU-MEDROL [Concomitant]
     Active Substance: METHYLPREDNISOLONE SODIUM SUCCINATE
     Route: 042
     Dates: start: 20190903
  15. VOLTADVANCE [Concomitant]
     Active Substance: DICLOFENAC SODIUM
     Indication: TOOTHACHE
     Route: 048
     Dates: start: 20190321, end: 20190321

REACTIONS (1)
  - Endometriosis [Recovered/Resolved with Sequelae]

NARRATIVE: CASE EVENT DATE: 20190613
